FAERS Safety Report 9933455 (Version 2)
Quarter: 2014Q1

REPORT INFORMATION
  Report Type: Report from Study
  Country: US (occurrence: US)
  Receive Date: 20140228
  Receipt Date: 20140228
  Transmission Date: 20141002
  Serious: No
  Sender: FDA-Public Use
  Company Number: US-MYLANLABS-2013S1020999

PATIENT
  Age: 14 Year
  Sex: Male
  Weight: 83.46 kg

DRUGS (2)
  1. AMNESTEEM CAPSULES [Suspect]
     Indication: ACNE
     Dosage: 20-30MG QD
     Route: 048
     Dates: start: 20130611, end: 20130913
  2. BENADRYL [Concomitant]
     Indication: MULTIPLE ALLERGIES
     Dosage: PRN FOR ENVIRONMENTAL/SEASONAL ALLERGIES

REACTIONS (2)
  - Dry eye [Not Recovered/Not Resolved]
  - Chapped lips [Not Recovered/Not Resolved]
